FAERS Safety Report 6325411-9 (Version None)
Quarter: 2009Q3

REPORT INFORMATION
  Report Type: 
  Country: None (occurrence: None)
  Receive Date: 20090824
  Receipt Date: 20090706
  Transmission Date: 20100115
  Serious: No
  Sender: FDA-Public Use
  Company Number: US-ABBOTT-09P-163-0585243-00

PATIENT
  Sex: Male

DRUGS (3)
  1. NIASPAN [Suspect]
     Indication: BLOOD CHOLESTEROL INCREASED
     Route: 048
     Dates: start: 20000101
  2. METFORMIN HCL [Concomitant]
     Indication: DIABETES MELLITUS
  3. BYETTA [Concomitant]
     Indication: DIABETES MELLITUS
     Route: 050

REACTIONS (1)
  - FLUSHING [None]
